FAERS Safety Report 4468111-2 (Version None)
Quarter: 2004Q4

REPORT INFORMATION
  Report Type: 
  Country: None (occurrence: None)
  Receive Date: 20041004
  Receipt Date: 20040920
  Transmission Date: 20050328
  Serious: Yes (Other)
  Sender: FDA-Public Use
  Company Number: 2004050571

PATIENT
  Age: 19 Year
  Sex: Female

DRUGS (3)
  1. ZYRTEC [Suspect]
     Indication: ASTHMA
     Dosage: (10 MG, 1 IN 2 D)
     Dates: start: 20020101
  2. TRAMADOL HCL [Concomitant]
  3. ALL OTHER THERAPEUTIC PRODUCTS (ALL OTER THERAPEUTIC PRODUCTS) [Concomitant]

REACTIONS (11)
  - ABDOMINAL PAIN [None]
  - ABORTION INDUCED [None]
  - ANAESTHETIC COMPLICATION [None]
  - BORRELIA INFECTION [None]
  - CAESAREAN SECTION [None]
  - DRUG EXPOSURE DURING PREGNANCY [None]
  - HYPERSENSITIVITY [None]
  - MONARTHRITIS [None]
  - PREGNANCY [None]
  - PROCEDURAL HYPERTENSION [None]
  - UTERINE DILATION AND CURETTAGE [None]
